FAERS Safety Report 17902703 (Version 3)
Quarter: 2021Q3

REPORT INFORMATION
  Report Type: Spontaneous
  Country: US (occurrence: US)
  Receive Date: 20200616
  Receipt Date: 20210908
  Transmission Date: 20211014
  Serious: Yes (Other)
  Sender: FDA-Public Use
  Company Number: US-PURDUE PHARMA-USA-2020-0152823

PATIENT
  Age: 31 Year
  Sex: Female

DRUGS (4)
  1. HYDROCODONE BITARTRATE/ACETAMINOPHEN [Suspect]
     Active Substance: ACETAMINOPHEN\HYDROCODONE BITARTRATE
     Indication: PRODUCT USED FOR UNKNOWN INDICATION
     Dosage: 80 TO 100 PILLS PER WEEK
     Route: 048
  2. OXYCONTIN [Suspect]
     Active Substance: OXYCODONE HYDROCHLORIDE
     Indication: PRODUCT USED FOR UNKNOWN INDICATION
     Dosage: 80 TO 100 PILLS PER WEEK
     Route: 048
  3. TRAMADOL CR TABLETS (RHODES 21?745) [Suspect]
     Active Substance: TRAMADOL
     Indication: PAIN
     Dosage: UNK
     Route: 048
     Dates: start: 200201, end: 200202
  4. OXYCODONE HCL CR TABLETS (SIMILAR TO NDA 22?272) [Suspect]
     Active Substance: OXYCODONE HYDROCHLORIDE
     Indication: PAIN
     Dosage: UNK
     Route: 048
     Dates: start: 200201, end: 200204

REACTIONS (21)
  - Liver injury [Unknown]
  - Abdominal distension [Unknown]
  - Rash [Unknown]
  - Bladder disorder [Unknown]
  - Unevaluable event [Unknown]
  - Constipation [Unknown]
  - Pelvic pain [Unknown]
  - Spinal pain [Unknown]
  - Nightmare [Unknown]
  - Vaginal haemorrhage [Unknown]
  - Diarrhoea [Unknown]
  - Renal disorder [Unknown]
  - Cognitive disorder [Unknown]
  - Malaise [Unknown]
  - Loss of consciousness [Unknown]
  - Drug interaction [Unknown]
  - Fall [Unknown]
  - Blood calcium decreased [Unknown]
  - Haemorrhage [Unknown]
  - Gastrointestinal haemorrhage [Unknown]
  - Cardiomyopathy [Unknown]

NARRATIVE: CASE EVENT DATE: 200202
